FAERS Safety Report 8289820-3 (Version None)
Quarter: 2012Q2

REPORT INFORMATION
  Report Type: 
  Country: None (occurrence: None)
  Receive Date: 20120417
  Receipt Date: 20120412
  Transmission Date: 20120825
  Serious: Yes (Death, Hospitalization, Other)
  Sender: FDA-Public Use
  Company Number: BR-PFIZER INC-2012076220

PATIENT
  Age: 74 Year
  Sex: Male
  Weight: 45 kg

DRUGS (2)
  1. SUTENT [Suspect]
     Indication: RENAL CANCER METASTATIC
     Dosage: 50 MG, 1X/DAY (CYCLES OF 4 BY 2 DAYS)
     Route: 048
     Dates: start: 20120304, end: 20120319
  2. MORPHINE SULFATE [Concomitant]
     Dosage: 30 MG, FOUR TIMES A WEEK

REACTIONS (7)
  - DIPLEGIA [None]
  - DEATH [None]
  - GENERAL PHYSICAL CONDITION ABNORMAL [None]
  - DEHYDRATION [None]
  - ASTHENIA [None]
  - DECREASED APPETITE [None]
  - VOMITING [None]
